FAERS Safety Report 20567432 (Version 1)
Quarter: 2022Q1

REPORT INFORMATION
  Report Type: Spontaneous
  Country: US (occurrence: US)
  Receive Date: 20220308
  Receipt Date: 20220308
  Transmission Date: 20220423
  Serious: Yes (Other)
  Sender: FDA-Public Use
  Company Number: US-SANOFI-01002661

PATIENT
  Sex: Male

DRUGS (4)
  1. DUPIXENT [Suspect]
     Active Substance: DUPILUMAB
     Dosage: UNKNOWN, 1X
  2. DUPIXENT [Suspect]
     Active Substance: DUPILUMAB
     Dosage: UNK, Q2M
  3. DUPIXENT [Suspect]
     Active Substance: DUPILUMAB
     Dosage: UNKNOWN
  4. PREDNISONE [Suspect]
     Active Substance: PREDNISONE

REACTIONS (6)
  - Atrial fibrillation [Not Recovered/Not Resolved]
  - Drug dependence [Unknown]
  - Blood pressure increased [Not Recovered/Not Resolved]
  - Dyspnoea [Unknown]
  - Inappropriate schedule of product administration [Unknown]
  - Drug ineffective [Unknown]
